FAERS Safety Report 25633405 (Version 1)
Quarter: 2025Q3

REPORT INFORMATION
  Report Type: Report from Study
  Country: JP (occurrence: JP)
  Receive Date: 20250801
  Receipt Date: 20250801
  Transmission Date: 20251020
  Serious: Yes (Hospitalization)
  Sender: BIOGEN
  Company Number: JP-BIOGEN-2025BI01318671

PATIENT
  Age: 64 Year
  Sex: Male

DRUGS (15)
  1. QALSODY [Suspect]
     Active Substance: TOFERSEN
     Indication: Amyotrophic lateral sclerosis
     Route: 050
     Dates: start: 20250702, end: 20250702
  2. QALSODY [Suspect]
     Active Substance: TOFERSEN
     Route: 050
     Dates: start: 20250716, end: 20250716
  3. MIYA-BM [Concomitant]
     Active Substance: CLOSTRIDIUM BUTYRICUM SPORES STRAIN M-55
     Dosage: TAKE 3 TABLETS PER DAY, DIVIDED INTO 3 DOSE.
     Route: 050
  4. NEUROTROPIN [Concomitant]
     Active Substance: NEUROTROPIN
     Route: 050
  5. ELIQUIS [Concomitant]
     Active Substance: APIXABAN
     Route: 050
  6. DULOXETINE HYDROCHLORIDE [Concomitant]
     Active Substance: DULOXETINE HYDROCHLORIDE
     Route: 050
  7. PREGABALIN [Concomitant]
     Active Substance: PREGABALIN
     Route: 050
  8. MOVICOL [Concomitant]
     Active Substance: POLYETHYLENE GLYCOL 3350\POTASSIUM CHLORIDE\SODIUM BICARBONATE\SODIUM CHLORIDE
     Route: 050
  9. MIRABEGRON [Concomitant]
     Active Substance: MIRABEGRON
     Route: 050
  10. MAGNESIUM OXIDE [Concomitant]
     Active Substance: MAGNESIUM OXIDE
     Route: 050
  11. METHYLCOBALAMIN [Concomitant]
     Active Substance: METHYLCOBALAMIN
     Route: 050
  12. LANSOPRAZOLE [Concomitant]
     Active Substance: LANSOPRAZOLE
     Route: 050
  13. LIMAPROST [Concomitant]
     Active Substance: LIMAPROST
     Route: 050
  14. RILUZOLE [Concomitant]
     Active Substance: RILUZOLE
     Route: 050
  15. EDARAVONE [Concomitant]
     Active Substance: EDARAVONE
     Route: 050

REACTIONS (1)
  - Ileus [Recovered/Resolved]

NARRATIVE: CASE EVENT DATE: 20250717
